FAERS Safety Report 11907950 (Version 1)
Quarter: 2016Q1

REPORT INFORMATION
  Report Type: Spontaneous
  Country: US (occurrence: US)
  Receive Date: 20160111
  Receipt Date: 20160111
  Transmission Date: 20160526
  Serious: Yes (Hospitalization, Other)
  Sender: FDA-Public Use
  Company Number: US-GLAXOSMITHKLINE-US2016GSK002602

PATIENT
  Sex: Male

DRUGS (1)
  1. FLOVENT [Suspect]
     Active Substance: FLUTICASONE PROPIONATE
     Indication: ASTHMA
     Dosage: UNK, U

REACTIONS (7)
  - Immune thrombocytopenic purpura [Unknown]
  - Nonspecific reaction [Unknown]
  - Haemorrhage [Unknown]
  - Loss of consciousness [Unknown]
  - Drug-disease interaction [Unknown]
  - Intensive care [Unknown]
  - Platelet count decreased [Unknown]
